FAERS Safety Report 18241597 (Version 2)
Quarter: 2020Q3

REPORT INFORMATION
  Report Type: Spontaneous
  Country: FI (occurrence: FI)
  Receive Date: 20200908
  Receipt Date: 20200924
  Transmission Date: 20201103
  Serious: Yes (Death, Other)
  Sender: FDA-Public Use
  Company Number: NVSC2020FI244944

PATIENT
  Age: 51 Year
  Sex: Male

DRUGS (21)
  1. CARBOPLATIN. [Suspect]
     Active Substance: CARBOPLATIN
     Dosage: UNK (1 CYCLES, DOSE REDUCTION, 3 CYCLES)
     Route: 065
     Dates: start: 201906
  2. TECENTRIQ [Suspect]
     Active Substance: ATEZOLIZUMAB
     Dosage: CYCLE THREE ? MAINTENENCE THERAPY
     Route: 042
     Dates: start: 20200430
  3. VEPESID [Concomitant]
     Active Substance: ETOPOSIDE
     Dosage: 50 MG(TB 2+1 TB ON THE 3RD DAY)
     Route: 065
     Dates: start: 2020
  4. CARBOPLATIN. [Suspect]
     Active Substance: CARBOPLATIN
     Indication: SMALL CELL LUNG CANCER
     Dosage: UNK (1 CYCLES, DOSE REDUCTION, 3 CYCLES)
     Route: 065
     Dates: start: 201901
  5. TECENTRIQ [Suspect]
     Active Substance: ATEZOLIZUMAB
     Dosage: CYCLE FOUR
     Route: 042
     Dates: start: 20200227, end: 20200302
  6. ETOPOSIDE. [Suspect]
     Active Substance: ETOPOSIDE
     Indication: SMALL CELL LUNG CANCER
     Dosage: UNK(1 ST CYCLE)
     Route: 065
     Dates: start: 201901
  7. ETOPOSIDE. [Suspect]
     Active Substance: ETOPOSIDE
     Dosage: UNK(2 ND CYCLYE)
     Route: 065
     Dates: start: 201906
  8. CARBOPLATIN. [Suspect]
     Active Substance: CARBOPLATIN
     Dosage: 400 UNK(5 TH CYCLE)
     Route: 065
     Dates: start: 20200227, end: 20200302
  9. TECENTRIQ [Suspect]
     Active Substance: ATEZOLIZUMAB
     Dosage: CYCLE TWO ? MAINTENENCE THERAPY
     Route: 042
     Dates: start: 20200409
  10. TECENTRIQ [Suspect]
     Active Substance: ATEZOLIZUMAB
     Dosage: CYCLE TWO
     Route: 042
     Dates: start: 20191230, end: 20200103
  11. ETOPOSIDE. [Suspect]
     Active Substance: ETOPOSIDE
     Dosage: (5 TH CYCLE)
     Route: 065
     Dates: start: 20200103, end: 20200203
  12. TECENTRIQ [Suspect]
     Active Substance: ATEZOLIZUMAB
     Dosage: CYCLE ONE ? MAINTENENCE THERAPY
     Route: 042
     Dates: start: 20200319
  13. ETOPOSIDE. [Suspect]
     Active Substance: ETOPOSIDE
     Dosage: UNK(3 RD CYCLE)
     Route: 065
     Dates: start: 20191205, end: 20191209
  14. ETOPOSIDE. [Suspect]
     Active Substance: ETOPOSIDE
     Dosage: UNK(4 TH CYCLE)
     Route: 042
     Dates: start: 20191230, end: 20200103
  15. TECENTRIQ [Suspect]
     Active Substance: ATEZOLIZUMAB
     Indication: SMALL CELL LUNG CANCER
     Dosage: CYCLE ONE
     Route: 042
     Dates: start: 20191205, end: 20191209
  16. TECENTRIQ [Suspect]
     Active Substance: ATEZOLIZUMAB
     Dosage: UNK (MAINTENANCE, 3 CYCLES)
     Route: 065
     Dates: start: 202003, end: 202004
  17. LONQUEX [Concomitant]
     Active Substance: LIPEGFILGRASTIM
     Indication: PRODUCT USED FOR UNKNOWN INDICATION
     Dosage: 6 MG
     Route: 065
     Dates: start: 20200130
  18. CARBOPLATIN. [Suspect]
     Active Substance: CARBOPLATIN
     Dosage: 600 MG(3 RD CYCLE)
     Route: 042
     Dates: start: 20191205, end: 20191209
  19. CARBOPLATIN. [Suspect]
     Active Substance: CARBOPLATIN
     Dosage: UNK(4 THCYCLE)
     Route: 042
     Dates: start: 20191230, end: 20200103
  20. CARBOPLATIN. [Suspect]
     Active Substance: CARBOPLATIN
     Dosage: 650 UNK(6 TH CYCLE)
     Route: 042
     Dates: start: 20200130, end: 20200203
  21. VEPESID [Concomitant]
     Active Substance: ETOPOSIDE
     Indication: PRODUCT USED FOR UNKNOWN INDICATION
     Dosage: 50 MG(2TB X 2 PO FOR 3 DAYS)
     Route: 065
     Dates: start: 2019

REACTIONS (7)
  - Loss of consciousness [Unknown]
  - Neutropenia [Recovered/Resolved]
  - Disorientation [Unknown]
  - Musculoskeletal stiffness [Unknown]
  - Anaemia [Recovered/Resolved]
  - Metastases to central nervous system [Fatal]
  - Thrombocytopenia [Recovered/Resolved]

NARRATIVE: CASE EVENT DATE: 20200121
